FAERS Safety Report 14995635 (Version 1)
Quarter: 2018Q2

REPORT INFORMATION
  Report Type: Spontaneous
  Country: AU (occurrence: AU)
  Receive Date: 20180611
  Receipt Date: 20180611
  Transmission Date: 20180711
  Serious: Yes (Life-Threatening, Other)
  Sender: FDA-Public Use
  Company Number: AU-GLENMARK PHARMACEUTICALS-2018GMK035959

PATIENT
  Age: 13 Year
  Sex: Female

DRUGS (3)
  1. CITALOPRAM HYDROBROMIDE. [Suspect]
     Active Substance: CITALOPRAM HYDROBROMIDE
     Indication: PRODUCT USED FOR UNKNOWN INDICATION
     Dosage: 540 MG, UNK (EXTENDED RELEASE; IN TOTAL)
     Route: 048
  2. RIVAROXABAN [Suspect]
     Active Substance: RIVAROXABAN
     Indication: PRODUCT USED FOR UNKNOWN INDICATION
     Dosage: 420 MG, UNK (IN TOTAL)
     Route: 048
  3. QUETIAPINE. [Suspect]
     Active Substance: QUETIAPINE
     Indication: PRODUCT USED FOR UNKNOWN INDICATION
     Dosage: 42 G, UNK (EXTENDED RELEASE ; IN TOTAL)
     Route: 048

REACTIONS (3)
  - Ileus [Unknown]
  - Overdose [Unknown]
  - Toxicity to various agents [Unknown]
